FAERS Safety Report 6045088-X (Version None)
Quarter: 2009Q1

REPORT INFORMATION
  Report Type: 
  Country: None (occurrence: None)
  Receive Date: 20090121
  Receipt Date: 20090108
  Transmission Date: 20090719
  Serious: Yes (Hospitalization)
  Sender: FDA-Public Use
  Company Number: US-BIOGENIDEC-2008BI018639

PATIENT
  Age: 45 Year
  Sex: Male
  Weight: 58 kg

DRUGS (3)
  1. TYSABRI [Suspect]
     Indication: MULTIPLE SCLEROSIS
     Route: 042
     Dates: start: 20050115, end: 20050201
  2. TYSABRI [Suspect]
     Route: 042
     Dates: start: 20060817
  3. SOLU-MEDROL [Concomitant]
     Dates: start: 20070116, end: 20070118

REACTIONS (6)
  - COLON ADENOMA [None]
  - COLON CANCER [None]
  - CONTUSION [None]
  - PAIN [None]
  - POOR VENOUS ACCESS [None]
  - WEIGHT DECREASED [None]
